FAERS Safety Report 6184604-4 (Version None)
Quarter: 2009Q2

REPORT INFORMATION
  Report Type: 
  Country: None (occurrence: None)
  Receive Date: 20090508
  Receipt Date: 20090428
  Transmission Date: 20091009
  Serious: Yes (Hospitalization)
  Sender: FDA-Public Use
  Company Number: PHEH2009US04255

PATIENT
  Sex: Male

DRUGS (3)
  1. PARLODEL [Suspect]
     Indication: EXTRAPYRAMIDAL DISORDER
     Dosage: 2.5 MG, BID
  2. TRAZODONE HCL [Suspect]
  3. MELLARIL [Suspect]

REACTIONS (6)
  - FACIAL PALSY [None]
  - HYPOTENSION [None]
  - HYPOTHERMIA [None]
  - LETHARGY [None]
  - LIP OEDEMA [None]
  - POSTURE ABNORMAL [None]
